FAERS Safety Report 11713887 (Version 14)
Quarter: 2017Q3

REPORT INFORMATION
  Report Type: Spontaneous
  Country: US (occurrence: US)
  Receive Date: 20151109
  Receipt Date: 20170906
  Transmission Date: 20171127
  Serious: Yes (Congenital Anomaly, Other)
  Sender: FDA-Public Use
  Company Number: PHEH2015US022964

PATIENT
  Sex: Male

DRUGS (4)
  1. ZOFRAN [Suspect]
     Active Substance: ONDANSETRON HYDROCHLORIDE
     Indication: FOETAL EXPOSURE DURING PREGNANCY
     Dosage: MOTHER^S DOSE: 4 MG, QD
     Route: 064
  2. ONDANSETRON [Suspect]
     Active Substance: ONDANSETRON
     Indication: FOETAL EXPOSURE DURING PREGNANCY
     Dosage: MOTHER^S DOSE: 04 MG PER 2 ML
     Route: 064
  3. ONDANSETRON [Suspect]
     Active Substance: ONDANSETRON
     Indication: FOETAL EXPOSURE DURING PREGNANCY
     Dosage: MOTHER^S DOSE: 4 MG, UNK
     Route: 064
  4. ONDANSETRON [Suspect]
     Active Substance: ONDANSETRON
     Indication: FOETAL EXPOSURE DURING PREGNANCY
     Dosage: MOTHER^S DOSE: 8 MG, UNK
     Route: 064

REACTIONS (48)
  - Neonatal hyponatraemia [Recovered/Resolved]
  - Hyperbilirubinaemia neonatal [Recovered/Resolved]
  - Hypoxia [Unknown]
  - Underweight [Unknown]
  - Pyrexia [Unknown]
  - Failure to thrive [Unknown]
  - Foetal exposure during pregnancy [Unknown]
  - Inguinal hernia [Unknown]
  - Asthma [Unknown]
  - Prepuce redundant [Unknown]
  - Cardiomegaly [Unknown]
  - Endocrine disorder [Unknown]
  - Atrial septal defect [Unknown]
  - Infantile apnoea [Unknown]
  - Injury [Unknown]
  - Fluid retention [Unknown]
  - Sleep apnoea syndrome [Unknown]
  - Anxiety [Unknown]
  - Phimosis [Unknown]
  - Pulmonary hypertension [Unknown]
  - Neonatal tachypnoea [Unknown]
  - Pulmonary oedema [Unknown]
  - Adenoidal hypertrophy [Unknown]
  - Sepsis neonatal [Recovered/Resolved]
  - Foetal growth restriction [Unknown]
  - Premature baby [Unknown]
  - Developmental delay [Unknown]
  - Emotional distress [Unknown]
  - Cardiac murmur [Unknown]
  - Otitis media [Unknown]
  - Gastrooesophageal reflux disease [Unknown]
  - Malnutrition [Unknown]
  - Dyspnoea [Unknown]
  - Congenital anomaly [Unknown]
  - Right-to-left cardiac shunt [Unknown]
  - Pulmonary artery stenosis [Unknown]
  - Anaemia neonatal [Unknown]
  - Hypokalaemia [Recovered/Resolved]
  - Hypertension [Unknown]
  - Nasopharyngitis [Unknown]
  - Body height below normal [Unknown]
  - Heart disease congenital [Unknown]
  - Bronchopulmonary dysplasia [Unknown]
  - Neonatal respiratory distress syndrome [Recovered/Resolved]
  - Neutropenia neonatal [Recovered/Resolved]
  - Hypoglycaemia neonatal [Recovered/Resolved]
  - Pain [Unknown]
  - Anhedonia [Unknown]

NARRATIVE: CASE EVENT DATE: 20110313
